FAERS Safety Report 7262434-X (Version None)
Quarter: 2011Q1

REPORT INFORMATION
  Report Type: 
  Country: None (occurrence: None)
  Receive Date: 20110119
  Receipt Date: 20110107
  Transmission Date: 20110831
  Serious: Yes (Hospitalization, Other)
  Sender: FDA-Public Use
  Company Number: JPI-P-013430

PATIENT
  Age: 81 Year
  Sex: Male
  Weight: 97.5234 kg

DRUGS (3)
  1. MULTIPLE UNSPECIFIED MEDICATIONS FOR HEART CONDITION [Concomitant]
  2. MULTIPLE UNSPECIFIED MEDICATIONS FOR HIGH BLOOD PRESSURE [Concomitant]
  3. XYREM [Suspect]
     Indication: SLEEP DISORDER
     Dosage: (2 IN 1 D), ORAL, (4.5 GM FIRST DOSE/3,5 GM SECOND DOSE), ORAL
     Route: 048
     Dates: start: 20060401

REACTIONS (3)
  - SPEECH DISORDER [None]
  - FALL [None]
  - CEREBRAL THROMBOSIS [None]
